FAERS Safety Report 16696545 (Version 1)
Quarter: 2019Q3

REPORT INFORMATION
  Report Type: Spontaneous
  Country: GB (occurrence: GB)
  Receive Date: 20190813
  Receipt Date: 20190813
  Transmission Date: 20191004
  Serious: Yes (Other)
  Sender: FDA-Public Use
  Company Number: GB-ASTRAZENECA-2019SF12276

PATIENT
  Age: 76 Year
  Sex: Male
  Weight: 108 kg

DRUGS (11)
  1. BENDROFLUMETHIAZIDE [Concomitant]
     Active Substance: BENDROFLUMETHIAZIDE
     Dosage: EACH MORNING.
     Dates: start: 20190207
  2. BUDESONIDE. [Suspect]
     Active Substance: BUDESONIDE
     Dosage: 200UG/INHAL DAILY
     Route: 055
     Dates: start: 20190430
  3. CODEINE PHOSPHATE [Concomitant]
     Active Substance: CODEINE PHOSPHATE
     Dosage: 1-2 TO BE TAKEN FOUR TIMES DAILY.
     Dates: start: 20180703
  4. PARACETAMOL [Concomitant]
     Active Substance: ACETAMINOPHEN
     Dates: start: 20180703
  5. ATORVASTATIN [Concomitant]
     Active Substance: ATORVASTATIN
     Dates: start: 20190207
  6. RAMIPRIL. [Concomitant]
     Active Substance: RAMIPRIL
     Dates: start: 20190207
  7. CARBOMER [Concomitant]
     Active Substance: CARBOMER
     Dosage: AS DIRECTED.
     Dates: start: 20190207
  8. QVAR [Concomitant]
     Active Substance: BECLOMETHASONE DIPROPIONATE
     Route: 055
     Dates: start: 20190604
  9. VOLTAROL [Concomitant]
     Active Substance: DICLOFENAC SODIUM
     Dosage: APPLY.
     Dates: start: 20190207
  10. PROCHLORPERAZINE. [Concomitant]
     Active Substance: PROCHLORPERAZINE
     Dosage: UP TO THREE TIMES PER DAY.
     Dates: start: 20190305, end: 20190314
  11. METHYLPREDNISOLONE ACETATE. [Concomitant]
     Active Substance: METHYLPREDNISOLONE ACETATE
     Dosage: USE AS DIRECTED.
     Dates: start: 20190426, end: 20190427

REACTIONS (2)
  - Muscle spasms [Recovered/Resolved]
  - Oral pain [Recovering/Resolving]

NARRATIVE: CASE EVENT DATE: 20190604
